FAERS Safety Report 26051437 (Version 1)
Quarter: 2025Q4

REPORT INFORMATION
  Report Type: Spontaneous
  Country: EU (occurrence: EU)
  Receive Date: 20251117
  Receipt Date: 20251117
  Transmission Date: 20260118
  Serious: Yes (Death, Life-Threatening, Hospitalization, Other)
  Sender: BRISTOL-MYERS SQUIBB COMPANY
  Company Number: EU-BRISTOL-MYERS SQUIBB COMPANY-2025-151228

PATIENT
  Age: 67 Year
  Sex: Female

DRUGS (6)
  1. MAVACAMTEN [Suspect]
     Active Substance: MAVACAMTEN
     Indication: Hypertrophic cardiomyopathy
  2. MAVACAMTEN [Suspect]
     Active Substance: MAVACAMTEN
     Dosage: 6 WEEKS BEFORE
  3. BISOPROLOL [Concomitant]
     Active Substance: BISOPROLOL
     Indication: Hypertrophic cardiomyopathy
     Dosage: LONG-ACTING
  4. BISOPROLOL [Concomitant]
     Active Substance: BISOPROLOL
  5. DISOPYRAMIDE [Concomitant]
     Active Substance: DISOPYRAMIDE
     Indication: Hypertrophic cardiomyopathy
     Dosage: LONG-ACTING
  6. DISOPYRAMIDE [Concomitant]
     Active Substance: DISOPYRAMIDE

REACTIONS (3)
  - Cardiogenic shock [Fatal]
  - Left ventricular dysfunction [Recovered/Resolved]
  - Stress cardiomyopathy [Unknown]
